FAERS Safety Report 21721644 (Version 1)
Quarter: 2022Q4

REPORT INFORMATION
  Report Type: Spontaneous
  Country: US (occurrence: US)
  Receive Date: 20221213
  Receipt Date: 20221213
  Transmission Date: 20230112
  Serious: No
  Sender: FDA-Public Use
  Company Number: US-002147023-NVSC2022US288435

PATIENT

DRUGS (1)
  1. GILENYA [Suspect]
     Active Substance: FINGOLIMOD HYDROCHLORIDE
     Indication: Product used for unknown indication
     Dosage: UNK UNK, QOD
     Route: 065

REACTIONS (4)
  - Hot flush [Unknown]
  - Heart rate increased [Unknown]
  - Nervousness [Unknown]
  - Dizziness [Unknown]
